FAERS Safety Report 16884536 (Version 1)
Quarter: 2019Q4

REPORT INFORMATION
  Report Type: Other
  Country: CA (occurrence: CA)
  Receive Date: 20191004
  Receipt Date: 20191004
  Transmission Date: 20200122
  Serious: Yes (Hospitalization, Other)
  Sender: FDA-Public Use
  Company Number: CA-PFIZER INC-2019419387

PATIENT
  Age: 36 Year
  Sex: Female

DRUGS (8)
  1. AMITRIPTYLINE [Suspect]
     Active Substance: AMITRIPTYLINE
     Indication: MIGRAINE
     Dosage: 30 MG, UNK
     Route: 065
  2. DINOPROSTONE. [Suspect]
     Active Substance: DINOPROSTONE
     Dosage: UNK
     Route: 065
  3. BUPIVACAINE HCL [Suspect]
     Active Substance: BUPIVACAINE HYDROCHLORIDE
     Dosage: 5 ML, UNK
     Route: 065
  4. FENTANYL CITRATE. [Suspect]
     Active Substance: FENTANYL CITRATE
     Indication: PAIN
     Dosage: 50 MG, UNK
     Route: 008
  5. BUPIVACAINE HCL [Suspect]
     Active Substance: BUPIVACAINE HYDROCHLORIDE
     Dosage: 4 ML, UNK
     Route: 065
  6. OXYTOCIN. [Suspect]
     Active Substance: OXYTOCIN
     Dosage: UNK
     Route: 065
  7. BUPIVACAINE HCL [Suspect]
     Active Substance: BUPIVACAINE HYDROCHLORIDE
     Indication: PAIN
     Dosage: 10 ML, UNK
     Route: 065
  8. SYNTHROID [Suspect]
     Active Substance: LEVOTHYROXINE SODIUM
     Indication: HYPOTHYROIDISM
     Dosage: UNK
     Route: 065

REACTIONS (2)
  - Premature rupture of membranes [Unknown]
  - Neuromuscular blockade [Unknown]
